FAERS Safety Report 7867743-9 (Version None)
Quarter: 2011Q4

REPORT INFORMATION
  Report Type: 
  Country: None (occurrence: None)
  Receive Date: 20111026
  Receipt Date: 20111011
  Transmission Date: 20120403
  Serious: Yes (Hospitalization)
  Sender: FDA-Public Use
  Company Number: 1000021154

PATIENT
  Age: 60 Year
  Sex: Male
  Weight: 86 kg

DRUGS (16)
  1. SPIRIVA [Concomitant]
  2. METHOCARBAMOL [Concomitant]
  3. ROFLUMILAST (ROFLUMILAST) (TABLETS) [Suspect]
     Indication: CHRONIC OBSTRUCTIVE PULMONARY DISEASE
     Dosage: 500 MCG (500 MCG, 1 IN 1 D), ORAL
     Route: 048
     Dates: start: 20110427, end: 20110507
  4. DOXEPIN [Concomitant]
  5. PANTOPRAZOL (PANTOPRAZOLE SODIUM) [Concomitant]
  6. TORASEMID (TORSEMIDE) [Concomitant]
  7. ATMADISC (SERETIDE MITE) [Concomitant]
  8. TETRAZEPAM [Concomitant]
  9. L-POLAMIDON (LEVOMETHADONE HYDROCHLORIDE) (DROPS) [Concomitant]
  10. POTASSIUM [Concomitant]
  11. ALBUTEROL SULFATE AUTOHALER [Concomitant]
  12. FOSTER (PIROXICAM) [Concomitant]
  13. CITALOPRAM HYDROBROMIDE [Concomitant]
  14. FLUCONAZOLE [Concomitant]
  15. DEXAMETHASONE [Concomitant]
  16. SYMBICORT [Concomitant]

REACTIONS (17)
  - VOMITING [None]
  - ASPARTATE AMINOTRANSFERASE INCREASED [None]
  - BLOOD CHOLESTEROL INCREASED [None]
  - TACHYCARDIA [None]
  - ALANINE AMINOTRANSFERASE INCREASED [None]
  - BLOOD TRIGLYCERIDES INCREASED [None]
  - DIARRHOEA [None]
  - HYPERTENSION [None]
  - CHOLESTASIS [None]
  - GAMMA-GLUTAMYLTRANSFERASE INCREASED [None]
  - DEPRESSED MOOD [None]
  - NAUSEA [None]
  - FLUID RETENTION [None]
  - ALCOHOL USE [None]
  - SUICIDAL IDEATION [None]
  - HEPATITIS A ANTIBODY POSITIVE [None]
  - INSOMNIA [None]
